FAERS Safety Report 26085963 (Version 2)
Quarter: 2025Q4

REPORT INFORMATION
  Report Type: Spontaneous
  Country: US (occurrence: US)
  Receive Date: 20251125
  Receipt Date: 20251230
  Transmission Date: 20260118
  Serious: No
  Sender: TEVA
  Company Number: US-TEVA-VS-3394722

PATIENT
  Sex: Female

DRUGS (1)
  1. DEXTROAMPHETAMINE SACCHARATE, AMPHETAMINE ASPARTATE, DEXTROAMPHETAMINE [Suspect]
     Active Substance: AMPHETAMINE ASPARTATE\AMPHETAMINE SULFATE\DEXTROAMPHETAMINE SACCHARATE\DEXTROAMPHETAMINE SULFATE
     Indication: Attention deficit hyperactivity disorder
     Dosage: INSTANT RELEASE
     Route: 065

REACTIONS (8)
  - Disturbance in attention [Unknown]
  - Dizziness [Unknown]
  - Palpitations [Unknown]
  - Anhedonia [Unknown]
  - Anger [Unknown]
  - Lethargy [Unknown]
  - Confusional state [Unknown]
  - Crying [Unknown]
